FAERS Safety Report 7569437-6 (Version None)
Quarter: 2011Q2

REPORT INFORMATION
  Report Type: 
  Country: None (occurrence: None)
  Receive Date: 20110624
  Receipt Date: 20110617
  Transmission Date: 20111010
  Serious: Yes (Hospitalization, Other)
  Sender: FDA-Public Use
  Company Number: FR-BIOGENIDEC-2011BI001644

PATIENT
  Age: 42 Year
  Sex: Female

DRUGS (8)
  1. VASOBRAL [Concomitant]
     Route: 048
  2. PAROXETINE HCL [Concomitant]
     Route: 048
  3. ACETAMINOPHEN [Concomitant]
     Route: 048
  4. TOPIRAMATE [Concomitant]
  5. UVEDOSE [Concomitant]
     Route: 048
  6. ANTI EPILEPTIC [Concomitant]
  7. OXYBUTININE [Concomitant]
     Route: 048
  8. TYSABRI [Suspect]
     Indication: MULTIPLE SCLEROSIS
     Route: 042
     Dates: start: 20070704

REACTIONS (1)
  - BREAST CANCER [None]
